FAERS Safety Report 22126849 (Version 3)
Quarter: 2023Q2

REPORT INFORMATION
  Report Type: Spontaneous
  Country: US (occurrence: US)
  Receive Date: 20230322
  Receipt Date: 20230509
  Transmission Date: 20230721
  Serious: Yes (Disabling)
  Sender: FDA-Public Use
  Company Number: US-JNJFOC-20230345201

PATIENT
  Age: 76 Year
  Sex: Male
  Weight: 69.916 kg

DRUGS (3)
  1. ERLEADA [Suspect]
     Active Substance: APALUTAMIDE
     Indication: Prostate cancer
     Dosage: 4 TABLETS ONCE A DAY
     Route: 048
     Dates: start: 20230124, end: 20230309
  2. AMLODIPINE [Concomitant]
     Active Substance: AMLODIPINE BESYLATE
     Indication: Blood pressure measurement
     Dates: start: 20230131
  3. ORGOVYX [Concomitant]
     Active Substance: RELUGOLIX
     Indication: Prostate cancer
     Dates: start: 20230124

REACTIONS (1)
  - Drug reaction with eosinophilia and systemic symptoms [Recovered/Resolved]

NARRATIVE: CASE EVENT DATE: 20230309
